FAERS Safety Report 21665094 (Version 1)
Quarter: 2022Q4

REPORT INFORMATION
  Report Type: Report from Study
  Country: US (occurrence: US)
  Receive Date: 20221130
  Receipt Date: 20221130
  Transmission Date: 20230112
  Serious: Yes (Hospitalization)
  Sender: FDA-Public Use
  Company Number: US-BAUSCHBL-2022BNL002391

PATIENT
  Age: 51 Year
  Sex: Male

DRUGS (2)
  1. PROLENSA [Suspect]
     Active Substance: BROMFENAC SODIUM
     Indication: Glaucoma
     Dosage: 13 YEARS AGO (STARTED)
     Route: 047
     Dates: start: 2009
  2. COMBIGAN [Concomitant]
     Active Substance: BRIMONIDINE TARTRATE\TIMOLOL MALEATE
     Indication: Product used for unknown indication

REACTIONS (2)
  - Hip fracture [Not Recovered/Not Resolved]
  - Road traffic accident [Not Recovered/Not Resolved]

NARRATIVE: CASE EVENT DATE: 20211103
